FAERS Safety Report 9172373 (Version 2)
Quarter: 2013Q3

REPORT INFORMATION
  Report Type: Report from Study
  Country: US (occurrence: US)
  Receive Date: 20130319
  Receipt Date: 20130708
  Transmission Date: 20140515
  Serious: Yes (Hospitalization)
  Sender: FDA-Public Use
  Company Number: US-MPIJNJ-2013-01991

PATIENT
  Age: 6 Year
  Sex: Female
  Weight: 23.65 kg

DRUGS (7)
  1. VELCADE [Suspect]
     Indication: B PRECURSOR TYPE ACUTE LEUKAEMIA
     Dosage: 1.3 MG/M2, UNK
     Route: 040
     Dates: start: 20130123, end: 20130202
  2. CYTARABINE [Suspect]
     Indication: B PRECURSOR TYPE ACUTE LEUKAEMIA
     Dosage: UNK
     Route: 037
     Dates: start: 20130123, end: 20130123
  3. DOXORUBICIN [Suspect]
     Indication: B PRECURSOR TYPE ACUTE LEUKAEMIA
     Dosage: 60 MG/M2, UNK
     Route: 042
     Dates: start: 20130123, end: 20130123
  4. METHOTREXATE [Suspect]
     Indication: B PRECURSOR TYPE ACUTE LEUKAEMIA
     Dosage: UNK
     Route: 037
     Dates: start: 20130123, end: 20130220
  5. PEGASPARGASE [Suspect]
     Indication: B PRECURSOR TYPE ACUTE LEUKAEMIA
     Dosage: UNK
     Dates: start: 20130123, end: 20130213
  6. PREDNISONE [Suspect]
     Indication: B PRECURSOR TYPE ACUTE LEUKAEMIA
     Dosage: 20 MG/M2, UNK
     Route: 048
     Dates: start: 20130123, end: 20130219
  7. VINCRISTINE [Suspect]
     Indication: B PRECURSOR TYPE ACUTE LEUKAEMIA
     Dosage: 1.5 MG/M2, UNK
     Route: 040
     Dates: start: 20130123, end: 20130213

REACTIONS (1)
  - Infective myositis [Recovered/Resolved]
